FAERS Safety Report 7486713-6 (Version None)
Quarter: 2011Q2

REPORT INFORMATION
  Report Type: 
  Country: None (occurrence: None)
  Receive Date: 20110517
  Receipt Date: 20100904
  Transmission Date: 20111010
  Serious: No
  Sender: FDA-Public Use
  Company Number: US-NOVEN-ALL1-2010-04713

PATIENT
  Sex: Male
  Weight: 20.862 kg

DRUGS (1)
  1. DAYTRANA [Suspect]
     Dosage: 10 MG, 1X/DAY:QD
     Route: 062
     Dates: start: 20100424

REACTIONS (9)
  - ASTHENIA [None]
  - EYE IRRITATION [None]
  - IRRITABILITY [None]
  - VISUAL ACUITY REDUCED [None]
  - DECREASED APPETITE [None]
  - THIRST DECREASED [None]
  - ANGER [None]
  - CRYING [None]
  - PRODUCT QUALITY ISSUE [None]
